FAERS Safety Report 22601900 (Version 2)
Quarter: 2023Q2

REPORT INFORMATION
  Report Type: Report from Study
  Country: CA (occurrence: CA)
  Receive Date: 20230614
  Receipt Date: 20230620
  Transmission Date: 20230722
  Serious: Yes (Other)
  Sender: FDA-Public Use
  Company Number: CA-AstraZeneca-2023A133783

PATIENT
  Sex: Female

DRUGS (1)
  1. ENHERTU [Suspect]
     Active Substance: FAM-TRASTUZUMAB DERUXTECAN-NXKI
     Indication: HER2 positive breast cancer
     Dosage: 414 MG, ONCE EVERY 3 WK
     Route: 042
     Dates: start: 20230519

REACTIONS (8)
  - Neutropenia [Unknown]
  - Speech disorder [Unknown]
  - Sleep disorder [Unknown]
  - Appetite disorder [Unknown]
  - Hypotension [Unknown]
  - Asthenia [Unknown]
  - Vomiting [Unknown]
  - Product use issue [Unknown]
